FAERS Safety Report 5934628-4 (Version None)
Quarter: 2008Q4

REPORT INFORMATION
  Report Type: 
  Country: None (occurrence: None)
  Receive Date: 20081029
  Receipt Date: 20081020
  Transmission Date: 20090506
  Serious: Yes (Other)
  Sender: FDA-Public Use
  Company Number: PT-AMGEN-US315379

PATIENT
  Age: 63 Year
  Sex: Female

DRUGS (1)
  1. ENBREL [Suspect]
     Indication: RHEUMATOID ARTHRITIS
     Route: 058
     Dates: start: 20080613, end: 20080926

REACTIONS (3)
  - CONDITION AGGRAVATED [None]
  - PULMONARY TUBERCULOSIS [None]
  - RHEUMATOID ARTHRITIS [None]
